FAERS Safety Report 24289191 (Version 1)
Quarter: 2024Q3

REPORT INFORMATION
  Report Type: Spontaneous
  Country: US (occurrence: US)
  Receive Date: 20240906
  Receipt Date: 20240906
  Transmission Date: 20241016
  Serious: No
  Sender: ASTELLAS
  Company Number: US-ASTELLAS-2024-AER-002346

PATIENT
  Sex: Male

DRUGS (2)
  1. PADCEV [Suspect]
     Active Substance: ENFORTUMAB VEDOTIN-EJFV
     Indication: Product used for unknown indication
     Dosage: CYCLE 4 WAS HELD
     Route: 065
  2. PADCEV [Suspect]
     Active Substance: ENFORTUMAB VEDOTIN-EJFV
     Dosage: RESTARTED ON REDUCED DOSE
     Route: 065

REACTIONS (4)
  - Skin exfoliation [Recovered/Resolved]
  - Wound [Recovered/Resolved]
  - Rash [Recovered/Resolved]
  - Skin ulcer [Recovered/Resolved]
